FAERS Safety Report 9259406 (Version 1)
Quarter: 2013Q2

REPORT INFORMATION
  Report Type: Spontaneous
  Country: US (occurrence: US)
  Receive Date: 20130427
  Receipt Date: 20130427
  Transmission Date: 20140414
  Serious: No
  Sender: FDA-Public Use
  Company Number: US-009507513-1304USA015911

PATIENT
  Age: 6 Year
  Sex: Male

DRUGS (2)
  1. SINGULAIR [Suspect]
     Indication: PERENNIAL ALLERGY
     Dosage: 5 MG, QD
     Route: 048
     Dates: start: 20130329, end: 20130424
  2. FLONASE [Concomitant]

REACTIONS (1)
  - Abnormal behaviour [Unknown]
